FAERS Safety Report 18070575 (Version 1)
Quarter: 2020Q3

REPORT INFORMATION
  Report Type: Spontaneous
  Country: US (occurrence: US)
  Receive Date: 20200727
  Receipt Date: 20200727
  Transmission Date: 20201103
  Serious: No
  Sender: FDA-Public Use
  Company Number: US-KAMADA LIMITED-2020US001410

PATIENT

DRUGS (1)
  1. GLASSIA [Suspect]
     Active Substance: .ALPHA.1-PROTEINASE INHIBITOR HUMAN
     Indication: ALPHA-1 ANTITRYPSIN DEFICIENCY
     Dosage: 60 MG/KG, UNKNOWN FREQUENCY
     Route: 042
     Dates: start: 201911

REACTIONS (3)
  - Tenderness [Unknown]
  - Device issue [Unknown]
  - Burning sensation [Unknown]

NARRATIVE: CASE EVENT DATE: 201912
